FAERS Safety Report 16568284 (Version 7)
Quarter: 2021Q4

REPORT INFORMATION
  Report Type: Spontaneous
  Country: FR (occurrence: FR)
  Receive Date: 20190712
  Receipt Date: 20211023
  Transmission Date: 20220303
  Serious: Yes (Hospitalization, Other)
  Sender: FDA-Public Use
  Company Number: PHHY2019FR157157

PATIENT
  Age: 20 Year
  Sex: Female

DRUGS (26)
  1. INFLIXIMAB [Suspect]
     Active Substance: INFLIXIMAB
     Indication: Still^s disease
     Dosage: 5 MG/KG
     Route: 065
  2. INFLIXIMAB [Suspect]
     Active Substance: INFLIXIMAB
     Dosage: 10 MG/KG
     Route: 065
  3. PREDNISONE [Suspect]
     Active Substance: PREDNISONE
     Indication: Still^s disease
     Dosage: 45 MG, QD (0.6 MG/KG OF BODY WEIGHT)
     Route: 065
  4. PREDNISONE [Suspect]
     Active Substance: PREDNISONE
     Dosage: REDUCED TO 15 MG, OD
     Route: 065
  5. PREDNISONE [Suspect]
     Active Substance: PREDNISONE
     Dosage: 12 MG, QD
     Route: 065
     Dates: start: 20170803
  6. METHOTREXATE [Suspect]
     Active Substance: METHOTREXATE
     Indication: Still^s disease
     Dosage: UNK
     Route: 065
     Dates: start: 201612
  7. METHOTREXATE [Suspect]
     Active Substance: METHOTREXATE
     Dosage: 30 MG, QW
     Route: 058
  8. METHOTREXATE [Suspect]
     Active Substance: METHOTREXATE
     Dosage: 20 MG, QW
     Route: 058
  9. METHYLPREDNISOLONE [Suspect]
     Active Substance: METHYLPREDNISOLONE
     Indication: Still^s disease
     Dosage: UNK
     Route: 042
  10. SYLVANT [Suspect]
     Active Substance: SILTUXIMAB
     Indication: Juvenile idiopathic arthritis
     Dosage: 690 MILLIGRAM PER INFUSION, INFUSION 1
     Route: 042
     Dates: start: 20170127
  11. SYLVANT [Suspect]
     Active Substance: SILTUXIMAB
     Indication: Still^s disease
     Dosage: INFUSION 2
     Route: 042
     Dates: start: 20170217
  12. SYLVANT [Suspect]
     Active Substance: SILTUXIMAB
     Dosage: INFUSION 3
     Route: 042
     Dates: start: 20170309
  13. SYLVANT [Suspect]
     Active Substance: SILTUXIMAB
     Dosage: INFUSION 4
     Route: 042
     Dates: start: 20170330
  14. SYLVANT [Suspect]
     Active Substance: SILTUXIMAB
     Dosage: INFUSION 5
     Route: 042
     Dates: start: 20170420
  15. SYLVANT [Suspect]
     Active Substance: SILTUXIMAB
     Dosage: INFUSION 6
     Route: 042
     Dates: start: 20170511
  16. SYLVANT [Suspect]
     Active Substance: SILTUXIMAB
     Dosage: INFUSION 7
     Route: 042
     Dates: start: 20170601
  17. SYLVANT [Suspect]
     Active Substance: SILTUXIMAB
     Dosage: INFUSION 8
     Route: 042
     Dates: start: 20170622
  18. SYLVANT [Suspect]
     Active Substance: SILTUXIMAB
     Dosage: INFUSION 9
     Route: 042
     Dates: start: 20170713
  19. SYLVANT [Suspect]
     Active Substance: SILTUXIMAB
     Dosage: INFUSION 10
     Route: 042
     Dates: start: 20170803
  20. ETOPOSIDE [Suspect]
     Active Substance: ETOPOSIDE
     Indication: Still^s disease
     Dosage: 100 MG
     Route: 042
  21. TOCILIZUMAB [Suspect]
     Active Substance: TOCILIZUMAB
     Indication: Still^s disease
     Dosage: 8 MG/KG
     Route: 042
  22. TOCILIZUMAB [Suspect]
     Active Substance: TOCILIZUMAB
     Dosage: 162 MG, QW
     Route: 058
     Dates: start: 20160803
  23. ANAKINRA [Suspect]
     Active Substance: ANAKINRA
     Indication: Still^s disease
     Dosage: 200 MG, QD
     Route: 065
     Dates: start: 201612
  24. ANAKINRA [Suspect]
     Active Substance: ANAKINRA
     Dosage: 100 MG, QD
     Route: 065
  25. CANAKINUMAB [Suspect]
     Active Substance: CANAKINUMAB
     Indication: Still^s disease
     Dosage: 150 MG, QMO
     Route: 065
  26. SILTUXIMAB [Suspect]
     Active Substance: SILTUXIMAB
     Indication: Still^s disease
     Dosage: 690 MILLIGRAM PER INFUSION,
     Route: 042

REACTIONS (9)
  - Haemophagocytic lymphohistiocytosis [Recovered/Resolved]
  - Drug dependence [Unknown]
  - Cushing^s syndrome [Unknown]
  - Cell death [Recovered/Resolved]
  - Treatment failure [Unknown]
  - Hypertriglyceridaemia [Recovering/Resolving]
  - Product use in unapproved indication [Unknown]
  - Off label use [Unknown]
  - Drug ineffective [Unknown]

NARRATIVE: CASE EVENT DATE: 20170101
